FAERS Safety Report 21792584 (Version 1)
Quarter: 2022Q4

REPORT INFORMATION
  Report Type: Spontaneous
  Country: TW (occurrence: TW)
  Receive Date: 20221229
  Receipt Date: 20221229
  Transmission Date: 20230113
  Serious: Yes (Hospitalization, Other)
  Sender: FDA-Public Use
  Company Number: TW-BAUSCH-BL-2022-028220

PATIENT
  Age: 33 Year
  Sex: Female

DRUGS (1)
  1. BRODALUMAB [Suspect]
     Active Substance: BRODALUMAB
     Indication: Pustular psoriasis
     Dosage: 210MG/Q2W
     Route: 058
     Dates: start: 20221123, end: 20221210

REACTIONS (7)
  - Hot flush [Unknown]
  - Skin wound [Unknown]
  - Pain [Unknown]
  - Staphylococcus test positive [Unknown]
  - Depression [Unknown]
  - Feeling cold [Unknown]
  - Erythema [Unknown]

NARRATIVE: CASE EVENT DATE: 20221210
